FAERS Safety Report 11289109 (Version 3)
Quarter: 2016Q1

REPORT INFORMATION
  Report Type: Spontaneous
  Country: JP (occurrence: JP)
  Receive Date: 20150721
  Receipt Date: 20160204
  Transmission Date: 20160525
  Serious: Yes (Other)
  Sender: FDA-Public Use
  Company Number: JP-MALLINCKRODT-T201503539

PATIENT
  Age: 60 Year
  Sex: Male
  Weight: 58 kg

DRUGS (17)
  1. METHADONE [Suspect]
     Active Substance: METHADONE HYDROCHLORIDE
     Dosage: 15 MG (DAILY DOSE 60 MG)
     Route: 048
     Dates: start: 20150519, end: 20150525
  2. FIRSTCIN [Concomitant]
     Active Substance: CEFOZOPRAN HYDROCHLORIDE
     Dosage: 2000 MG
     Route: 051
     Dates: start: 20150413, end: 20150416
  3. MEROPENEM. [Concomitant]
     Active Substance: MEROPENEM
     Dosage: 1000 MG
     Route: 051
     Dates: start: 20150416, end: 20150421
  4. METHADONE [Suspect]
     Active Substance: METHADONE HYDROCHLORIDE
     Dosage: 30 MG, 60 MG DAILY DOSE
     Route: 048
     Dates: start: 20150526
  5. OXINORM [Concomitant]
     Active Substance: OXYCODONE HYDROCHLORIDE
     Dosage: 5 MG, PRN
     Route: 048
     Dates: start: 20150403
  6. PARIET [Concomitant]
     Active Substance: RABEPRAZOLE SODIUM
     Dosage: 10 MG
  7. LANSOPRAZOLE. [Concomitant]
     Active Substance: LANSOPRAZOLE
     Dosage: 30 MG
     Route: 048
     Dates: start: 20150420, end: 20150701
  8. METHADONE [Suspect]
     Active Substance: METHADONE HYDROCHLORIDE
     Dosage: DAILY DOSE 25 MG
     Route: 048
     Dates: start: 20150518, end: 20150518
  9. NAIXAN [Concomitant]
     Active Substance: NAPROXEN SODIUM
     Dosage: 300 MG
     Route: 048
  10. METHADONE [Suspect]
     Active Substance: METHADONE HYDROCHLORIDE
     Dosage: 5 MG (DAILY DOSE 15 MG)
     Route: 048
     Dates: start: 20150506, end: 20150517
  11. LIXIANA [Concomitant]
     Active Substance: EDOXABAN TOSILATE MONOHYDRATE
     Dosage: 30 MG
     Route: 048
  12. LYRICA [Concomitant]
     Active Substance: PREGABALIN
     Dosage: 150 MG
     Route: 048
  13. METHADONE [Suspect]
     Active Substance: METHADONE HYDROCHLORIDE
     Indication: CANCER PAIN
     Dosage: 5 MG, 10 MG DAILY DOSE
     Route: 048
     Dates: start: 20150402, end: 20150505
  14. ZOMETA [Concomitant]
     Active Substance: ZOLEDRONIC ACID
     Dosage: 4 MG
     Route: 051
  15. GEMZAR [Concomitant]
     Active Substance: GEMCITABINE HYDROCHLORIDE
     Dosage: 1300 MG
     Route: 051
     Dates: end: 20150408
  16. DOCETAXEL. [Concomitant]
     Active Substance: DOCETAXEL
     Dosage: 65 MG
     Route: 051
     Dates: end: 20150408
  17. FLORID [Concomitant]
     Active Substance: MICONAZOLE
     Dosage: 5 MG
     Route: 048
     Dates: start: 20150427, end: 20150527

REACTIONS (4)
  - Delirium [Not Recovered/Not Resolved]
  - Vomiting [Not Recovered/Not Resolved]
  - Somnolence [Not Recovered/Not Resolved]
  - Nausea [Not Recovered/Not Resolved]

NARRATIVE: CASE EVENT DATE: 20150407
